FAERS Safety Report 9614213 (Version 6)
Quarter: 2014Q1

REPORT INFORMATION
  Report Type: Spontaneous
  Country: IT (occurrence: IT)
  Receive Date: 20131011
  Receipt Date: 20140103
  Transmission Date: 20141002
  Serious: Yes (Other)
  Sender: FDA-Public Use
  Company Number: IT-ROCHE-769657

PATIENT
  Age: 42 Year
  Sex: Female

DRUGS (9)
  1. HERCEPTIN [Suspect]
     Indication: BREAST CANCER
     Route: 042
     Dates: start: 20090513, end: 20090623
  2. FARMORUBICIN [Suspect]
     Indication: BREAST CANCER
     Route: 065
     Dates: start: 20080916, end: 20081119
  3. ENDOXAN BAXTER [Suspect]
     Indication: BREAST CANCER
     Route: 042
     Dates: start: 20080916, end: 20081119
  4. TAMOXIFEN [Concomitant]
     Route: 065
     Dates: start: 20090513, end: 20090625
  5. SOLDESAM [Concomitant]
     Indication: PREMEDICATION
     Route: 065
     Dates: start: 20080916, end: 20081119
  6. SOLDESAM [Concomitant]
     Route: 065
     Dates: start: 20090513, end: 20090623
  7. RANIDIL [Concomitant]
     Indication: PREMEDICATION
     Route: 042
     Dates: start: 20080916, end: 20081119
  8. RANIDIL [Concomitant]
     Dosage: FORM: 1 VIAL
     Route: 065
     Dates: start: 20090513, end: 20090623
  9. ALOXI [Concomitant]
     Indication: PREMEDICATION
     Route: 042
     Dates: start: 20080916, end: 20081119

REACTIONS (5)
  - Mitral valve incompetence [Recovered/Resolved]
  - Respiratory failure [Recovered/Resolved]
  - Left atrial dilatation [Recovered/Resolved]
  - Systolic dysfunction [Recovered/Resolved]
  - Ejection fraction decreased [Recovered/Resolved]
